FAERS Safety Report 6336556-1 (Version None)
Quarter: 2009Q3

REPORT INFORMATION
  Report Type: 
  Country: None (occurrence: None)
  Receive Date: 20090901
  Receipt Date: 20090825
  Transmission Date: 20100115
  Serious: Yes (Hospitalization)
  Sender: FDA-Public Use
  Company Number: JP-JNJFOC-20090608495

PATIENT
  Sex: Female
  Weight: 69 kg

DRUGS (24)
  1. FENTANYL [Suspect]
     Indication: OSTEOARTHRITIS
     Route: 062
  2. MYSLEE [Concomitant]
     Indication: INSOMNIA
     Route: 048
  3. DORAL [Concomitant]
     Indication: INSOMNIA
     Route: 048
  4. RHYTHMY [Concomitant]
     Indication: INSOMNIA
     Route: 048
  5. SYLAZEPAM [Concomitant]
     Indication: INSOMNIA
     Route: 048
  6. LUDIOMIL [Concomitant]
     Indication: BIPOLAR I DISORDER
     Route: 048
  7. SEDIEL [Concomitant]
     Indication: BIPOLAR I DISORDER
     Route: 048
  8. TOLEDOMIN [Concomitant]
     Indication: BIPOLAR I DISORDER
     Route: 048
  9. PURSENNID [Concomitant]
     Indication: CONSTIPATION
     Route: 048
  10. CONIEL [Concomitant]
     Indication: HYPERTENSION
     Route: 048
  11. DIOVAN [Concomitant]
     Indication: HYPERTENSION
     Route: 048
  12. GASPORT [Concomitant]
     Indication: GASTRITIS PROPHYLAXIS
     Route: 048
  13. LIVALO [Concomitant]
     Indication: HYPERLIPIDAEMIA
     Route: 048
  14. VESICARE [Concomitant]
     Indication: POLLAKIURIA
     Route: 048
  15. MOHRUS [Concomitant]
     Indication: OSTEOARTHRITIS
     Route: 062
  16. ISALON [Concomitant]
     Route: 048
  17. ISALON [Concomitant]
     Indication: GASTRITIS PROPHYLAXIS
     Route: 048
  18. LOXOPROFEN SODIUM [Concomitant]
     Route: 048
  19. LOXOPROFEN SODIUM [Concomitant]
     Indication: OSTEOARTHRITIS
     Route: 048
  20. ARTZ DISPO [Concomitant]
     Route: 014
  21. ARTZ DISPO [Concomitant]
     Indication: OSTEOARTHRITIS
     Route: 014
  22. NOVAMIN [Concomitant]
     Indication: PROPHYLAXIS OF NAUSEA AND VOMITING
     Route: 048
  23. PANPYOTIN [Concomitant]
     Indication: CONSTIPATION
     Route: 048
  24. MAGNESIUM OXIDE [Concomitant]
     Indication: CONSTIPATION
     Route: 048

REACTIONS (2)
  - DELIRIUM [None]
  - HALLUCINATION [None]
